FAERS Safety Report 8132944-1 (Version None)
Quarter: 2012Q1

REPORT INFORMATION
  Report Type: 
  Country: None (occurrence: None)
  Receive Date: 20120213
  Receipt Date: 20120120
  Transmission Date: 20120608
  Serious: Yes (Hospitalization)
  Sender: FDA-Public Use
  Company Number: US-ROCHE-1036791

PATIENT
  Sex: Male
  Weight: 75.74 kg

DRUGS (10)
  1. EX-LAX (SENNOSIDES) [Concomitant]
     Dates: start: 20100101
  2. HYDROCODONE [Concomitant]
  3. ALBUTEROL SULFATE [Concomitant]
  4. NEXIUM [Concomitant]
  5. CARBOPLATIN [Suspect]
     Indication: NON-SMALL CELL LUNG CANCER
     Route: 042
     Dates: start: 20100104
  6. COMBIVENT [Concomitant]
  7. AVASTIN [Suspect]
     Indication: NON-SMALL CELL LUNG CANCER
     Route: 042
     Dates: start: 20100104, end: 20100319
  8. COLACE [Concomitant]
     Dates: start: 20100101
  9. NEUPOGEN [Concomitant]
  10. PACLITAXEL [Suspect]
     Indication: NON-SMALL CELL LUNG CANCER
     Route: 042
     Dates: start: 20100104

REACTIONS (2)
  - URINARY RETENTION [None]
  - CELLULITIS [None]
